FAERS Safety Report 16689752 (Version 2)
Quarter: 2019Q4

REPORT INFORMATION
  Report Type: Spontaneous
  Country: IT (occurrence: IT)
  Receive Date: 20190809
  Receipt Date: 20191120
  Transmission Date: 20200122
  Serious: Yes (Life-Threatening, Hospitalization, Other)
  Sender: FDA-Public Use
  Company Number: IT-PFM-2019-09422

PATIENT

DRUGS (2)
  1. HEMANGIOL [Suspect]
     Active Substance: PROPRANOLOL HYDROCHLORIDE
     Dosage: UNK, BID (2/DAY)
     Route: 048
     Dates: start: 20190301
  2. HEMANGIOL [Suspect]
     Active Substance: PROPRANOLOL HYDROCHLORIDE
     Indication: HAEMANGIOMA
     Dosage: 10 MG, BID (2/DAY)
     Route: 048
     Dates: start: 20190301, end: 20190729

REACTIONS (7)
  - Metabolic acidosis [Recovered/Resolved]
  - Product administered to patient of inappropriate age [Unknown]
  - Hypoglycaemia [Recovered/Resolved]
  - Coma [Recovered/Resolved]
  - Bradycardia [Recovered/Resolved]
  - Sopor [Recovered/Resolved]
  - Off label use [Unknown]

NARRATIVE: CASE EVENT DATE: 20190729
